FAERS Safety Report 20734235 (Version 9)
Quarter: 2022Q4

REPORT INFORMATION
  Report Type: Report from Study
  Country: CN (occurrence: CN)
  Receive Date: 20220421
  Receipt Date: 20221224
  Transmission Date: 20230113
  Serious: Yes (Hospitalization, Other)
  Sender: FDA-Public Use
  Company Number: CN-TAKEDA-2022TUS026374

PATIENT
  Age: 38 Year
  Sex: Female
  Weight: 73 kg

DRUGS (4)
  1. VEDOLIZUMAB [Suspect]
     Active Substance: VEDOLIZUMAB
     Indication: Colitis ulcerative
     Dosage: 300 MILLIGRAM
     Route: 042
     Dates: start: 20220323
  2. TRIMEBUTINE MALEATE [Concomitant]
     Active Substance: TRIMEBUTINE MALEATE
     Indication: Gastric disorder
     Dosage: 0.2 GRAM, TID
     Route: 048
     Dates: start: 20220329, end: 20220604
  3. MESALAMINE [Concomitant]
     Active Substance: MESALAMINE
     Indication: Inflammatory bowel disease
     Dosage: 200 MILLIGRAM, BID
     Route: 048
     Dates: start: 20211111
  4. DEXAMETHASONE [Concomitant]
     Active Substance: DEXAMETHASONE
     Indication: Inflammatory bowel disease
     Dosage: 5 MILLIGRAM, BID
     Route: 054
     Dates: start: 20220324, end: 20220326

REACTIONS (11)
  - Haematochezia [Recovered/Resolved]
  - Hypokalaemia [Recovered/Resolved]
  - Faecal calprotectin increased [Recovered/Resolved]
  - Occult blood positive [Recovered/Resolved]
  - Pus in stool [Recovered/Resolved]
  - White blood cells stool [Recovered/Resolved]
  - Hyponatraemia [Recovered/Resolved]
  - Hyperlipidaemia [Not Recovered/Not Resolved]
  - Leukocytosis [Recovered/Resolved]
  - Abdominal pain [Not Recovered/Not Resolved]
  - Vomiting [Recovered/Resolved]

NARRATIVE: CASE EVENT DATE: 20220326
